FAERS Safety Report 7806812-6 (Version None)
Quarter: 2011Q4

REPORT INFORMATION
  Report Type: 
  Country: None (occurrence: None)
  Receive Date: 20111011
  Receipt Date: 20111007
  Transmission Date: 20120403
  Serious: Yes (Other)
  Sender: FDA-Public Use
  Company Number: DE-PFIZER INC-2011239810

PATIENT
  Age: 32 Year
  Sex: Female

DRUGS (2)
  1. LYRICA [Suspect]
     Dosage: 150 MG, UNK
     Dates: start: 20110101
  2. LYRICA [Suspect]
     Indication: ANXIETY
     Dosage: 75 MG, UNK
     Dates: start: 20110901, end: 20110901

REACTIONS (4)
  - RASH PUSTULAR [None]
  - RASH [None]
  - HYPERSENSITIVITY [None]
  - BLISTER [None]
